FAERS Safety Report 11182854 (Version 1)
Quarter: 2015Q2

REPORT INFORMATION
  Report Type: Spontaneous
  Country: JP (occurrence: JP)
  Receive Date: 20150611
  Receipt Date: 20150611
  Transmission Date: 20150821
  Serious: Yes (Hospitalization, Other)
  Sender: FDA-Public Use
  Company Number: JP-NOVOPROD-451965

PATIENT
  Sex: Male

DRUGS (3)
  1. LANTUS [Suspect]
     Active Substance: INSULIN GLARGINE
     Indication: DIABETES MELLITUS
     Dosage: 12 IU, QD
     Route: 065
     Dates: start: 20150316
  2. NOVORAPID [Suspect]
     Active Substance: INSULIN ASPART
     Dosage: 28 IU, QD (12-8-8)
     Route: 058
  3. NOVORAPID [Suspect]
     Active Substance: INSULIN ASPART
     Indication: DIABETES MELLITUS
     Dosage: 18 IU, QD (8-4-6)
     Route: 058
     Dates: start: 20150316

REACTIONS (4)
  - Cardiac disorder [Unknown]
  - Ascites [Unknown]
  - Hypoglycaemia [Unknown]
  - Dizziness [Unknown]

NARRATIVE: CASE EVENT DATE: 2015
